FAERS Safety Report 11183630 (Version 1)
Quarter: 2015Q2

REPORT INFORMATION
  Report Type: Spontaneous
  Country: US (occurrence: None)
  Receive Date: 20150610
  Receipt Date: 20150610
  Transmission Date: 20150821
  Serious: No
  Sender: FDA-Public Use
  Company Number: None

PATIENT
  Age: 49 Year
  Sex: Male
  Weight: 131.54 kg

DRUGS (2)
  1. CPAP [Concomitant]
     Active Substance: DEVICE
  2. LEXAPRO [Suspect]
     Active Substance: ESCITALOPRAM OXALATE
     Indication: GENERALISED ANXIETY DISORDER
     Dosage: 1 /DAY ONCE DAILY TAKEN BY MOUTH
     Route: 048
     Dates: start: 20150521, end: 20150609

REACTIONS (6)
  - Tremor [None]
  - Insomnia [None]
  - Fatigue [None]
  - Product substitution issue [None]
  - Mental impairment [None]
  - Feeling abnormal [None]

NARRATIVE: CASE EVENT DATE: 20150609
